FAERS Safety Report 7033328-X (Version None)
Quarter: 2010Q4

REPORT INFORMATION
  Report Type: 
  Country: None (occurrence: None)
  Receive Date: 20101007
  Receipt Date: 20101006
  Transmission Date: 20110411
  Serious: Yes (Other)
  Sender: FDA-Public Use
  Company Number: DE-BRISTOL-MYERS SQUIBB COMPANY-15286404

PATIENT
  Age: 79 Year
  Sex: Female
  Weight: 50 kg

DRUGS (1)
  1. SPRYCEL [Suspect]
     Indication: CHRONIC MYELOID LEUKAEMIA
     Dosage: DRUG REDUCED 70MG/DAY(17FEB09-09APR09)+ 50MG/DAY FROM 09APR09(TABS) 100MG:03APR09-17FEB2009
     Route: 048
     Dates: start: 20090203

REACTIONS (2)
  - MALAISE [None]
  - RESTLESSNESS [None]
